FAERS Safety Report 5017794-7 (Version None)
Quarter: 2006Q2

REPORT INFORMATION
  Report Type: 
  Country: None (occurrence: None)
  Receive Date: 20060530
  Receipt Date: 20050318
  Transmission Date: 20061013
  Serious: Yes (Death, Hospitalization, Other)
  Sender: FDA-Public Use
  Company Number: 2005040396

PATIENT
  Age: 67 Year
  Sex: Male

DRUGS (5)
  1. LYRICA [Suspect]
     Indication: NEURALGIA
     Dosage: 300 MG (150 MG, 2 IN 1 D),ORAL
     Route: 048
     Dates: start: 20050301
  2. OXYCODONE (OXYCODONE) [Suspect]
     Indication: PAIN
     Dosage: (80 MG, AS NECESSARY),ORAL
     Route: 048
     Dates: start: 20050201, end: 20050308
  3. METHYLPHENIDATE HCL [Concomitant]
  4. AMITRIPTYLINE HCL [Concomitant]
  5. FENTANYL [Concomitant]

REACTIONS (8)
  - CONFUSIONAL STATE [None]
  - COORDINATION ABNORMAL [None]
  - DISEASE PROGRESSION [None]
  - DYSSTASIA [None]
  - MALAISE [None]
  - PARAESTHESIA [None]
  - RESPIRATORY RATE DECREASED [None]
  - SOMNOLENCE [None]
